FAERS Safety Report 8127779-X (Version None)
Quarter: 2012Q1

REPORT INFORMATION
  Report Type: 
  Country: None (occurrence: None)
  Receive Date: 20120210
  Receipt Date: 20120203
  Transmission Date: 20120608
  Serious: Yes (Hospitalization, Other)
  Sender: FDA-Public Use
  Company Number: US-BAYER-2012-012153

PATIENT
  Age: 33 Year
  Sex: Female
  Weight: 71 kg

DRUGS (3)
  1. MULTI-VITAMINS [Concomitant]
  2. YAZ [Suspect]
     Indication: CONTRACEPTION
     Dosage: UNK
     Route: 048
     Dates: start: 20061009, end: 20070420
  3. LEXAPRO [Concomitant]
     Dosage: 10 MG, QD
     Route: 048

REACTIONS (3)
  - PULMONARY EMBOLISM [None]
  - PULMONARY FIBROSIS [None]
  - MENTAL DISORDER [None]
